FAERS Safety Report 17550841 (Version 4)
Quarter: 2020Q2

REPORT INFORMATION
  Report Type: Spontaneous
  Country: US (occurrence: US)
  Receive Date: 20200317
  Receipt Date: 20200619
  Transmission Date: 20200713
  Serious: Yes (Hospitalization, Other)
  Sender: FDA-Public Use
  Company Number: US-PFIZER INC-2020115411

PATIENT
  Age: 80 Year
  Sex: Male
  Weight: 74.83 kg

DRUGS (8)
  1. LIPITOR [Concomitant]
     Active Substance: ATORVASTATIN CALCIUM
     Dosage: UNK [LIPITOR 40 MGM]
  2. LASIX [Concomitant]
     Active Substance: FUROSEMIDE
     Dosage: UNK [LASIX 40 MGM]
  3. ALDACTONE [Concomitant]
     Active Substance: SPIRONOLACTONE
     Dosage: UNK [ALDACTONE 25 MGM]
  4. GLIPIZIDE. [Concomitant]
     Active Substance: GLIPIZIDE
     Dosage: UNK [GLIPIZIDE 5 MGM]
  5. VYNDAQEL [Suspect]
     Active Substance: TAFAMIDIS MEGLUMINE
     Indication: CARDIAC AMYLOIDOSIS
  6. OXYBUTYNIN. [Concomitant]
     Active Substance: OXYBUTYNIN CHLORIDE
     Dosage: UNK [OXYBUTYNIN 15 MGM]
  7. VYNDAQEL [Suspect]
     Active Substance: TAFAMIDIS MEGLUMINE
     Indication: AMYLOIDOSIS SENILE
     Dosage: 80 MG, 1X/DAY
     Dates: start: 201907
  8. POTASSIUM [Concomitant]
     Active Substance: POTASSIUM
     Dosage: UNK [POTASSIUM 20 MEQ]
     Dates: start: 201904

REACTIONS (2)
  - Thrombosis [Unknown]
  - Cerebrovascular accident [Recovered/Resolved]

NARRATIVE: CASE EVENT DATE: 20200308
